FAERS Safety Report 12560980 (Version 1)
Quarter: 2016Q3

REPORT INFORMATION
  Report Type: Report from Study
  Country: CO (occurrence: CO)
  Receive Date: 20160715
  Receipt Date: 20160715
  Transmission Date: 20161109
  Serious: Yes (Death, Other)
  Sender: FDA-Public Use
  Company Number: CO-BRISTOL-MYERS SQUIBB COMPANY-BMS-2016-056444

PATIENT
  Age: 78 Year
  Sex: Male

DRUGS (1)
  1. IPILIMUMAB [Suspect]
     Active Substance: IPILIMUMAB
     Indication: METASTATIC MALIGNANT MELANOMA
     Dosage: 30 MG, UNK, EVERY
     Route: 042
     Dates: start: 20160327

REACTIONS (3)
  - Off label use [Unknown]
  - Haematemesis [Fatal]
  - Metastasis [Fatal]

NARRATIVE: CASE EVENT DATE: 20160630
